FAERS Safety Report 4614634-2 (Version None)
Quarter: 2005Q1

REPORT INFORMATION
  Report Type: 
  Country: None (occurrence: None)
  Receive Date: 20050309
  Receipt Date: 20041122
  Transmission Date: 20050727
  Serious: Yes (Other)
  Sender: FDA-Public Use
  Company Number: A03200404003

PATIENT

DRUGS (2)
  1. KAYEXALATE [Suspect]
  2. SORBITOL [Suspect]

REACTIONS (1)
  - GASTROINTESTINAL NECROSIS [None]
